FAERS Safety Report 10214501 (Version 1)
Quarter: 2014Q2

REPORT INFORMATION
  Report Type: Spontaneous
  Country: None (occurrence: None)
  Receive Date: 20140528
  Receipt Date: 20140528
  Transmission Date: 20141212
  Serious: Yes (Hospitalization, Disabling)
  Sender: FDA-Public Use
  Company Number: 153144

PATIENT
  Age: 57 Year
  Sex: Male

DRUGS (1)
  1. ADRIAMYCIN [Suspect]
     Indication: HEPATOCELLULAR CARCINOMA

REACTIONS (4)
  - Paraplegia [None]
  - Dysuria [None]
  - Dyschezia [None]
  - Spinal cord ischaemia [None]
